FAERS Safety Report 9691497 (Version 1)
Quarter: 2013Q4

REPORT INFORMATION
  Report Type: Spontaneous
  Country: US (occurrence: US)
  Receive Date: 20131115
  Receipt Date: 20131115
  Transmission Date: 20140711
  Serious: No
  Sender: FDA-Public Use
  Company Number: US-009507513-1311USA005525

PATIENT
  Age: 28 Year
  Sex: Male

DRUGS (1)
  1. SINGULAIR [Suspect]
     Indication: MULTIPLE ALLERGIES
     Dosage: 10 MG, QD
     Route: 048

REACTIONS (2)
  - Anger [Unknown]
  - Mood altered [Unknown]
